FAERS Safety Report 7123143-0 (Version None)
Quarter: 2010Q4

REPORT INFORMATION
  Report Type: 
  Country: None (occurrence: None)
  Receive Date: 20101125
  Receipt Date: 20101119
  Transmission Date: 20110411
  Serious: No
  Sender: FDA-Public Use
  Company Number: US-BIOGENIDEC-2010BI031096

PATIENT
  Age: 66 Year
  Sex: Female

DRUGS (3)
  1. TYSABRI [Suspect]
     Indication: MULTIPLE SCLEROSIS
     Route: 042
     Dates: start: 20070316, end: 20080417
  2. TYSABRI [Suspect]
     Route: 042
     Dates: start: 20081024, end: 20081231
  3. TYSABRI [Suspect]
     Route: 042
     Dates: start: 20090507

REACTIONS (7)
  - ABDOMINAL PAIN UPPER [None]
  - FATIGUE [None]
  - GAIT DISTURBANCE [None]
  - HEADACHE [None]
  - MULTIPLE SCLEROSIS [None]
  - MUSCULOSKELETAL DISCOMFORT [None]
  - TEMPERATURE INTOLERANCE [None]
